FAERS Safety Report 9547535 (Version 2)
Quarter: 2013Q4

REPORT INFORMATION
  Report Type: Spontaneous
  Country: US (occurrence: None)
  Receive Date: 20130920
  Receipt Date: 20131002
  Transmission Date: 20140711
  Serious: Yes (Other)
  Sender: FDA-Public Use
  Company Number: AUR-APL-2013-07795

PATIENT
  Sex: Female

DRUGS (7)
  1. ZIDOVUDINE (ZIDOVUDINE) [Suspect]
     Indication: ANTIRETROVIRAL THERAPY
     Dosage: UNKNOWN
  2. DARUNAVIR (PREZISTA) [Suspect]
     Indication: ANTIRETROVIRAL THERAPY
     Route: 048
  3. INTELENCE [Suspect]
     Indication: ANTIRETROVIRAL THERAPY
     Route: 048
  4. ISENTRESS [Suspect]
     Indication: ANTIRETROVIRAL THERAPY
  5. NORVIR (RITONAVIR) [Suspect]
     Indication: ANTIRETROVIRAL THERAPY
  6. TRUVADA [Suspect]
     Indication: ANTIRETROVIRAL THERAPY
  7. APTIVUS [Suspect]
     Indication: ANTIRETROVIRAL THERAPY

REACTIONS (2)
  - Gestational diabetes [None]
  - Exposure during pregnancy [None]
